FAERS Safety Report 9748743 (Version 1)
Quarter: 2013Q4

REPORT INFORMATION
  Report Type: Spontaneous
  Country: US (occurrence: None)
  Receive Date: 20131209
  Receipt Date: 20131209
  Transmission Date: 20140711
  Serious: Yes (Hospitalization, Other)
  Sender: FDA-Public Use
  Company Number: SYM-2013-13550

PATIENT
  Age: 68 Year
  Sex: Female
  Weight: 57.15 kg

DRUGS (11)
  1. LODOSYN [Suspect]
     Indication: PARKINSON^S DISEASE
     Dosage: 3 IN 1 D, FEW MONTHS AGO
     Route: 048
  2. SINEMET (SINEMET) (LEVODOPA, CARBIDOPA) [Concomitant]
  3. LEXAPRO (ESCITALOPRAM OXALATE) [Concomitant]
  4. LIPITOR (ATORVASTATIN CALCIUM) [Concomitant]
  5. ACETAMINOPHEN (PARACETAMOL) [Concomitant]
  6. TENORMIN (ATENOLOL) [Concomitant]
  7. CENTRUM SILVER (CENTRUM SILVER) (ASCORBIC ACID, PYRIDOXINE HYDROCHLORIDE, BIOTIN, TO [Concomitant]
  8. GLUCOSAMINE-CHRONDROTIN (GLUCOSAMINE W/CHONDROITIN SULFATE) [Concomitant]
  9. COQ10 (OTHER THERAPEUTIC PRODUCTS) [Concomitant]
  10. FLAX SEED OIL (OTHER THERAPEUTIC PRODUCTS) [Concomitant]
  11. MAGNESIUM [Concomitant]

REACTIONS (3)
  - Atrial fibrillation [None]
  - Vision blurred [None]
  - Diplopia [None]
